FAERS Safety Report 15651220 (Version 1)
Quarter: 2018Q4

REPORT INFORMATION
  Report Type: Spontaneous
  Country: GB (occurrence: GB)
  Receive Date: 20181123
  Receipt Date: 20181123
  Transmission Date: 20190205
  Serious: Yes (Other)
  Sender: FDA-Public Use
  Company Number: GB-TEVA-2018-GB-977388

PATIENT
  Age: 40 Year
  Sex: Male
  Weight: 83 kg

DRUGS (13)
  1. IBUPROFEN. [Concomitant]
     Active Substance: IBUPROFEN
     Route: 065
     Dates: start: 20180917, end: 20180924
  2. SALBUTAMOL [Concomitant]
     Active Substance: ALBUTEROL
     Dosage: PUFFS
     Route: 055
     Dates: start: 20180411
  3. ZOPICLONE [Concomitant]
     Active Substance: ZOPICLONE
     Dosage: 1 DOSAGE FORMS DAILY; NIGHT
     Route: 065
     Dates: start: 20181019, end: 20181022
  4. CLENIL MODULITE [Concomitant]
     Active Substance: BECLOMETHASONE DIPROPIONATE
     Dosage: 4 DOSAGE FORMS DAILY; PUFFS
     Route: 055
     Dates: start: 20180411
  5. INFLUENZA VIRUS [Concomitant]
     Active Substance: INFLUENZA VIRUS VACCINE
     Route: 065
     Dates: start: 20181010, end: 20181010
  6. PARACETAMOL [Concomitant]
     Active Substance: ACETAMINOPHEN
     Route: 065
     Dates: start: 20181016
  7. TRAZODONE [Concomitant]
     Active Substance: TRAZODONE HYDROCHLORIDE
     Route: 065
     Dates: start: 20180810
  8. CETIRIZINE [Concomitant]
     Active Substance: CETIRIZINE HYDROCHLORIDE
     Dosage: 1 DOSAGE FORMS DAILY;
     Route: 065
     Dates: start: 20180803
  9. VALPROIC ACID. [Suspect]
     Active Substance: VALPROIC ACID
     Route: 065
     Dates: start: 20181019
  10. NORTRIPTYLINE [Concomitant]
     Active Substance: NORTRIPTYLINE
     Dosage: 1-2
     Route: 065
     Dates: start: 20181002, end: 20181011
  11. MIRTAZAPINE. [Concomitant]
     Active Substance: MIRTAZAPINE
     Route: 065
     Dates: start: 20180924
  12. AMOXICILLIN. [Concomitant]
     Active Substance: AMOXICILLIN
     Dates: start: 20180905, end: 20180912
  13. VENLAFAXINE [Concomitant]
     Active Substance: VENLAFAXINE HYDROCHLORIDE
     Route: 065
     Dates: start: 20181001

REACTIONS (4)
  - Rash [Recovering/Resolving]
  - Eye pruritus [Recovering/Resolving]
  - Swollen tongue [Recovering/Resolving]
  - Oral mucosal blistering [Unknown]

NARRATIVE: CASE EVENT DATE: 20181024
